FAERS Safety Report 12980296 (Version 1)
Quarter: 2016Q4

REPORT INFORMATION
  Report Type: Spontaneous
  Country: US (occurrence: US)
  Receive Date: 20161128
  Receipt Date: 20161128
  Transmission Date: 20170207
  Serious: No
  Sender: FDA-Public Use
  Company Number: US-SEPTODONT-201603406

PATIENT
  Age: 41 Year
  Sex: Female
  Weight: 63.5 kg

DRUGS (1)
  1. PRILOCAINE HCL 4% PLAIN [Suspect]
     Active Substance: PRILOCAINE
     Indication: LOCAL ANAESTHESIA
     Route: 004
     Dates: start: 20160511, end: 20160511

REACTIONS (5)
  - Dyskinesia [Unknown]
  - Heart rate decreased [Recovered/Resolved]
  - Emotional disorder [Unknown]
  - Agitation postoperative [Unknown]
  - Cardiac discomfort [Unknown]

NARRATIVE: CASE EVENT DATE: 20160511
